FAERS Safety Report 6006901-5 (Version None)
Quarter: 2008Q4

REPORT INFORMATION
  Report Type: 
  Country: None (occurrence: None)
  Receive Date: 20081217
  Receipt Date: 20081205
  Transmission Date: 20090506
  Serious: Yes (Other)
  Sender: FDA-Public Use
  Company Number: CN-ROCHE-601931

PATIENT

DRUGS (1)
  1. CAPECITABINE [Suspect]
     Dosage: TWICE A DAY ON THE FIRST DAY OF 3DCR, 14 DAY CONTINUOUS DOSING CYCLE, REPEATED EVERY 21 DAYS.
     Route: 048

REACTIONS (1)
  - DUODENAL OBSTRUCTION [None]
